FAERS Safety Report 10995822 (Version 2)
Quarter: 2015Q2

REPORT INFORMATION
  Report Type: Spontaneous
  Country: US (occurrence: US)
  Receive Date: 20150407
  Receipt Date: 20150413
  Transmission Date: 20150821
  Serious: Yes (Death, Hospitalization)
  Sender: FDA-Public Use
  Company Number: US-MALLINCKRODT-T201501776

PATIENT
  Age: 78 Year
  Sex: Female

DRUGS (10)
  1. METFORMIN [Concomitant]
     Active Substance: METFORMIN HYDROCHLORIDE
  2. DIAZEPAM. [Concomitant]
     Active Substance: DIAZEPAM
  3. BUPROPION [Concomitant]
     Active Substance: BUPROPION
  4. ENALAPRIL [Concomitant]
     Active Substance: ENALAPRIL
  5. PAROXETINE [Concomitant]
     Active Substance: PAROXETINE\PAROXETINE HYDROCHLORIDE
  6. HYDROMORPHONE [Suspect]
     Active Substance: HYDROMORPHONE
  7. SIMVASTATIN. [Concomitant]
     Active Substance: SIMVASTATIN
  8. FENTANYL CITRATE. [Suspect]
     Active Substance: FENTANYL CITRATE
  9. FENTANYL TRANSDERMAL SYSTEM [Suspect]
     Active Substance: FENTANYL
  10. AMLODIPINE [Concomitant]
     Active Substance: AMLODIPINE BESYLATE

REACTIONS (2)
  - Overdose [Fatal]
  - Atrial fibrillation [Unknown]
